FAERS Safety Report 18046770 (Version 1)
Quarter: 2020Q3

REPORT INFORMATION
  Report Type: Spontaneous
  Country: DE (occurrence: DE)
  Receive Date: 20200720
  Receipt Date: 20200720
  Transmission Date: 20201103
  Serious: Yes (Hospitalization)
  Sender: FDA-Public Use
  Company Number: DE-009507513-2007DEU005253

PATIENT
  Age: 80 Year
  Sex: Female
  Weight: 79 kg

DRUGS (1)
  1. KEYTRUDA [Suspect]
     Active Substance: PEMBROLIZUMAB
     Indication: MALIGNANT MELANOMA
     Dosage: DAILY DOSE: 400 MG MILLGRAM(S) EVERY TOTAL
     Route: 042
     Dates: start: 20200403, end: 20200424

REACTIONS (3)
  - Extraocular muscle paresis [Not Recovered/Not Resolved]
  - Quadriparesis [Not Recovered/Not Resolved]
  - Myositis [Not Recovered/Not Resolved]

NARRATIVE: CASE EVENT DATE: 20200428
